FAERS Safety Report 7592253-6 (Version None)
Quarter: 2011Q3

REPORT INFORMATION
  Report Type: 
  Country: None (occurrence: None)
  Receive Date: 20110706
  Receipt Date: 20110627
  Transmission Date: 20111222
  Serious: Yes (Hospitalization, Other)
  Sender: FDA-Public Use
  Company Number: US-NAPPMUNDI-USA-2011-0070330

PATIENT
  Age: 75 Year
  Sex: Female
  Weight: 57 kg

DRUGS (16)
  1. DIPHENHYDRAMINE HCL [Concomitant]
     Indication: PREMEDICATION
     Dosage: UNK
     Dates: start: 20110215, end: 20110328
  2. CEFEPIME [Concomitant]
     Indication: PROPHYLAXIS
     Dosage: UNK
     Dates: start: 20110405, end: 20110405
  3. SODIUM CHLORIDE [Concomitant]
     Indication: FLUID REPLACEMENT
     Dosage: UNK
     Dates: start: 20110215, end: 20110405
  4. ACETAMINOPHEN [Concomitant]
     Indication: PREMEDICATION
     Dosage: UNK
     Dates: start: 20110215, end: 20110215
  5. OXYCONTIN [Suspect]
     Indication: PRODUCT USED FOR UNKNOWN INDICATION
  6. DOCETAXEL [Suspect]
     Indication: NEOPLASM MALIGNANT
     Dosage: 68.4 MG, SINGLE
     Route: 042
     Dates: start: 20110124, end: 20110124
  7. ZOLEDRONIC ACID [Concomitant]
     Indication: METASTASES TO BONE
     Dosage: UNK
     Dates: start: 20110328, end: 20110328
  8. TEMSIROLIMUS [Suspect]
     Dosage: 10 MG, SINGLE
     Dates: start: 20110418, end: 20110418
  9. FAMOTIDINE [Concomitant]
     Indication: PREMEDICATION
     Dosage: UNK
     Dates: start: 20110307, end: 20110307
  10. POTASSIUM CHLORIDE [Concomitant]
     Indication: HYPOKALAEMIA
     Dosage: UNK
     Dates: start: 20110405, end: 20110405
  11. ZOFRAN [Concomitant]
     Indication: NAUSEA
     Dosage: UNK
     Dates: start: 20110405, end: 20110405
  12. DOCETAXEL [Suspect]
     Dosage: 68.4 MG, SINGLE
     Dates: start: 20110418, end: 20110418
  13. DEXAMETHASONE [Concomitant]
     Indication: PRODUCT USED FOR UNKNOWN INDICATION
     Dosage: UNK
     Dates: start: 20110307, end: 20110328
  14. PALONOSETRON [Concomitant]
     Indication: PREMEDICATION
     Dosage: UNK
     Dates: start: 20110307, end: 20110328
  15. NEXIUM [Concomitant]
     Indication: GASTROOESOPHAGEAL REFLUX DISEASE
     Dosage: UNK
     Dates: start: 20110405, end: 20110405
  16. TEMSIROLIMUS [Suspect]
     Indication: NEOPLASM MALIGNANT
     Dosage: 10 MG, SINGLE
     Route: 042
     Dates: start: 20110124, end: 20110124

REACTIONS (10)
  - URINARY RETENTION [None]
  - PLEURAL EFFUSION [None]
  - METASTASES TO CENTRAL NERVOUS SYSTEM [None]
  - DYSPNOEA [None]
  - CONSTIPATION [None]
  - LYMPHOPENIA [None]
  - DEHYDRATION [None]
  - WHITE BLOOD CELL COUNT DECREASED [None]
  - BLOOD PHOSPHORUS DECREASED [None]
  - ANAEMIA [None]
